FAERS Safety Report 16654115 (Version 1)
Quarter: 2019Q3

REPORT INFORMATION
  Report Type: Spontaneous
  Country: US (occurrence: US)
  Receive Date: 20190731
  Receipt Date: 20190731
  Transmission Date: 20191004
  Serious: No
  Sender: FDA-Public Use
  Company Number: US-SA-2019SA197027

PATIENT
  Age: 77 Year
  Sex: Female
  Weight: 61.2 kg

DRUGS (2)
  1. LANTUS SOLOSTAR [Suspect]
     Active Substance: INSULIN GLARGINE
     Dosage: 5 U, QD
     Route: 065
  2. INSULIN LISPRO [Suspect]
     Active Substance: INSULIN LISPRO
     Route: 065

REACTIONS (4)
  - Blood glucose decreased [Unknown]
  - Hypoaesthesia [Unknown]
  - Muscular weakness [Unknown]
  - Intentional dose omission [Unknown]
